FAERS Safety Report 23020063 (Version 1)
Quarter: 2023Q4

REPORT INFORMATION
  Report Type: Report from Study
  Country: US (occurrence: US)
  Receive Date: 20231003
  Receipt Date: 20231003
  Transmission Date: 20240110
  Serious: Yes (Other)
  Sender: FDA-Public Use
  Company Number: US-GILEAD-2023-0645111

PATIENT
  Age: 38 Year
  Sex: Female

DRUGS (1)
  1. BICTEGRAVIR\EMTRICITABINE\TENOFOVIR ALAFENAMIDE [Suspect]
     Active Substance: BICTEGRAVIR\EMTRICITABINE\TENOFOVIR ALAFENAMIDE
     Indication: HIV infection
     Dosage: 275 MG, QD
     Route: 048
     Dates: start: 20190301

REACTIONS (4)
  - Abortion spontaneous [Recovered/Resolved]
  - Human chorionic gonadotropin decreased [Unknown]
  - Vaginal haemorrhage [Unknown]
  - Maternal exposure during pregnancy [Recovered/Resolved]

NARRATIVE: CASE EVENT DATE: 20230715
